FAERS Safety Report 6486098-8 (Version None)
Quarter: 2009Q4

REPORT INFORMATION
  Report Type: 
  Country: None (occurrence: None)
  Receive Date: 20091209
  Receipt Date: 20090720
  Transmission Date: 20100525
  Serious: No
  Sender: FDA-Public Use
  Company Number: US-AMGEN-KDL356689

PATIENT
  Sex: Female

DRUGS (1)
  1. ENBREL [Suspect]
     Indication: PSORIATIC ARTHROPATHY
     Route: 058

REACTIONS (11)
  - BURNING SENSATION [None]
  - DIZZINESS [None]
  - DYSGEUSIA [None]
  - EYE PRURITUS [None]
  - PHOTOSENSITIVITY REACTION [None]
  - RASH ERYTHEMATOUS [None]
  - RASH PRURITIC [None]
  - SINUSITIS [None]
  - TONGUE COATED [None]
  - VISION BLURRED [None]
  - VULVOVAGINAL MYCOTIC INFECTION [None]
